FAERS Safety Report 16839034 (Version 1)
Quarter: 2019Q4

REPORT INFORMATION
  Report Type: Spontaneous
  Country: US (occurrence: US)
  Receive Date: 20190920
  Receipt Date: 20190920
  Transmission Date: 20200122
  Serious: Yes (Other)
  Sender: FDA-Public Use
  Company Number: None

PATIENT
  Age: 8 Month
  Sex: Female
  Weight: 6.75 kg

DRUGS (3)
  1. AMOXICILLIN 400 MG/5 SUSP [Suspect]
     Active Substance: AMOXICILLIN
     Indication: EAR INFECTION
     Dosage: ?          QUANTITY:1 TEASPOON(S);?
     Route: 048
     Dates: start: 20190911, end: 20190920
  2. D-VISOL SUPPLEMENT [Concomitant]
  3. AZITHROMYCIN ANHYDROUS. [Concomitant]
     Active Substance: AZITHROMYCIN ANHYDROUS

REACTIONS (3)
  - Product preparation error [None]
  - Drug ineffective [None]
  - Suspected product quality issue [None]

NARRATIVE: CASE EVENT DATE: 20190911
